FAERS Safety Report 4347553-X (Version None)
Quarter: 2004Q1

REPORT INFORMATION
  Report Type: 
  Country: None (occurrence: None)
  Receive Date: 20040325
  Receipt Date: 20031204
  Transmission Date: 20041129
  Serious: No
  Sender: FDA-Public Use
  Company Number: USA030843173

PATIENT
  Age: 80 Year
  Sex: Female
  Weight: 50 kg

DRUGS (2)
  1. FORTEO [Suspect]
     Indication: OSTEOPOROSIS
     Dates: start: 20030708
  2. ASPIRIN [Concomitant]

REACTIONS (8)
  - ASTHENIA [None]
  - BACK PAIN [None]
  - DRY MOUTH [None]
  - INJECTION SITE HAEMORRHAGE [None]
  - KERATOCONJUNCTIVITIS SICCA [None]
  - MUSCLE CRAMP [None]
  - OSTEOARTHRITIS [None]
  - PAIN IN EXTREMITY [None]
